FAERS Safety Report 5956505-5 (Version None)
Quarter: 2008Q4

REPORT INFORMATION
  Report Type: 
  Country: None (occurrence: None)
  Receive Date: 20081118
  Receipt Date: 20081113
  Transmission Date: 20090506
  Serious: Yes (Death)
  Sender: FDA-Public Use
  Company Number: A0757073A

PATIENT
  Age: 82 Year
  Sex: Male
  Weight: 60 kg

DRUGS (3)
  1. SERETIDE [Suspect]
     Route: 055
     Dates: start: 20050101, end: 20081101
  2. DIOVAN [Concomitant]
     Dates: start: 20050101, end: 20081101
  3. BALCOR [Concomitant]
     Dosage: 1TAB TWICE PER DAY
     Route: 048

REACTIONS (1)
  - AORTIC ANEURYSM [None]
